FAERS Safety Report 11927162 (Version 1)
Quarter: 2016Q1

REPORT INFORMATION
  Report Type: Spontaneous
  Country: US (occurrence: None)
  Receive Date: 20160115
  Receipt Date: 20160115
  Transmission Date: 20160526
  Serious: Yes (Other)
  Sender: FDA-Public Use
  Company Number: None

PATIENT
  Age: 54 Year
  Sex: Female
  Weight: 96.16 kg

DRUGS (8)
  1. OMEPRAZOLE. [Concomitant]
     Active Substance: OMEPRAZOLE
  2. ZICAM COLD REMEDY RAPIDMELTS [Suspect]
     Active Substance: ZINC ACETATE ANHYDROUS\ZINC GLUCONATE
     Indication: NASOPHARYNGITIS
     Route: 048
     Dates: start: 20160104, end: 20160105
  3. CALCIUM +D [Concomitant]
     Active Substance: CALCIUM\VITAMIN D
  4. ASPIRIN. [Concomitant]
     Active Substance: ASPIRIN
  5. TURMERIC [Concomitant]
     Active Substance: TURMERIC
  6. VITAMIN D [Concomitant]
     Active Substance: CHOLECALCIFEROL
  7. GARLIC. [Concomitant]
     Active Substance: GARLIC
  8. DULOXETINE. [Concomitant]
     Active Substance: DULOXETINE

REACTIONS (3)
  - Ageusia [None]
  - Feeling cold [None]
  - Dysgeusia [None]

NARRATIVE: CASE EVENT DATE: 20160105
